FAERS Safety Report 19681969 (Version 2)
Quarter: 2021Q3

REPORT INFORMATION
  Report Type: Spontaneous
  Country: SE (occurrence: SE)
  Receive Date: 20210810
  Receipt Date: 20210826
  Transmission Date: 20211014
  Serious: Yes (Other)
  Sender: FDA-Public Use
  Company Number: SE-MYLANLABS-2021M1048790

PATIENT
  Age: 88 Year
  Sex: Female

DRUGS (4)
  1. SPIRONOLAKTON [Concomitant]
     Active Substance: SPIRONOLACTONE
     Dosage: UNK
  2. FURADANTIN [Suspect]
     Active Substance: NITROFURANTOIN
     Dosage: 50 MILLIGRAM, BID (1 TABLET 2 TIMES)
     Dates: start: 20210730, end: 2021
  3. ATENOLOL. [Concomitant]
     Active Substance: ATENOLOL
     Dosage: UNK
  4. FURADANTIN [Suspect]
     Active Substance: NITROFURANTOIN
     Indication: BLADDER DISORDER
     Dosage: UNK
     Dates: start: 2021

REACTIONS (5)
  - Asthma [Recovered/Resolved]
  - Malaise [Recovered/Resolved]
  - Nausea [Recovered/Resolved]
  - Suspected counterfeit product [Unknown]
  - Pyrexia [Recovered/Resolved]

NARRATIVE: CASE EVENT DATE: 2021
